FAERS Safety Report 6693305-5 (Version None)
Quarter: 2010Q2

REPORT INFORMATION
  Report Type: 
  Country: None (occurrence: None)
  Receive Date: 20100421
  Receipt Date: 20100421
  Transmission Date: 20101027
  Serious: Yes (Life-Threatening)
  Sender: FDA-Public Use
  Company Number: None

PATIENT
  Age: 76 Year
  Sex: Male
  Weight: 131.5431 kg

DRUGS (1)
  1. AMITRIPTYLINE HCL [Suspect]
     Indication: HERPES ZOSTER
     Dosage: 25MG EVERY HOUR PO
     Route: 048
     Dates: start: 20100226, end: 20100228

REACTIONS (7)
  - AMNESIA [None]
  - CONFUSIONAL STATE [None]
  - DELUSION [None]
  - DRUG DISPENSING ERROR [None]
  - HALLUCINATION [None]
  - MEDICATION ERROR [None]
  - THINKING ABNORMAL [None]
